FAERS Safety Report 19823985 (Version 1)
Quarter: 2021Q3

REPORT INFORMATION
  Report Type: Report from Study
  Country: None (occurrence: KW)
  Receive Date: 20210914
  Receipt Date: 20210914
  Transmission Date: 20211014
  Serious: Yes (Other)
  Sender: FDA-Public Use
  Company Number: KW-ABBVIE-21K-091-4069857-00

PATIENT
  Age: 64 Year
  Sex: Female
  Weight: 94 kg

DRUGS (12)
  1. DUODOPA [Suspect]
     Active Substance: CARBIDOPA\LEVODOPA
     Dosage: MORNING DOSE 15ML, CONTINIOUS RATE 3.7ML/HR, EXTRA DOSE 2ML
     Route: 050
     Dates: start: 20210905
  2. DUODOPA [Suspect]
     Active Substance: CARBIDOPA\LEVODOPA
     Indication: PARKINSON^S DISEASE
     Dosage: MORNING DOSE 15ML, CONTINIOUS RATE 3.4ML/HR, EXTRA DOSE 2ML, CONTINUOUS OVER 16HOURS
     Route: 050
     Dates: start: 20171005, end: 20210905
  3. NEUPRO [Concomitant]
     Active Substance: ROTIGOTINE
     Indication: PARKINSON^S DISEASE
     Dosage: NEUPRO PATCH
  4. LANTUS [Concomitant]
     Active Substance: INSULIN GLARGINE
     Indication: DIABETES MELLITUS
     Dosage: LANTUS INSULIN?TWICE A DAY
     Route: 058
  5. LEVACIN [Concomitant]
     Indication: PARKINSON^S DISEASE
     Dosage: 100/25MG?THREE TIMES PER DAY
     Route: 048
  6. CREDANIL [Concomitant]
     Indication: PRODUCT USED FOR UNKNOWN INDICATION
     Dosage: 10/100?ONCE A DAY
     Route: 048
  7. EZETIMIBE. [Concomitant]
     Active Substance: EZETIMIBE
     Indication: HYPERTENSION
     Route: 048
  8. DUSPATALIN RETARD [Concomitant]
     Indication: HYPERTENSION
     Route: 048
  9. CO?DIOVAN [Concomitant]
     Active Substance: HYDROCHLOROTHIAZIDE\VALSARTAN
     Indication: PRODUCT USED FOR UNKNOWN INDICATION
     Dosage: 160/12.5?ONCE A DAY
     Route: 048
  10. JANUVIA [Concomitant]
     Active Substance: SITAGLIPTIN PHOSPHATE
     Indication: PRODUCT USED FOR UNKNOWN INDICATION
     Route: 048
  11. CRESTOR [Concomitant]
     Active Substance: ROSUVASTATIN CALCIUM
     Indication: PRODUCT USED FOR UNKNOWN INDICATION
     Dosage: ONCE A DAY
     Route: 048
  12. NOVORAPID [Concomitant]
     Active Substance: INSULIN ASPART
     Indication: PRODUCT USED FOR UNKNOWN INDICATION
     Dosage: NOVORAPID INSULIN?THREE TIMES PER DAY
     Route: 058

REACTIONS (3)
  - Speech disorder [Recovered/Resolved]
  - Bradykinesia [Recovered/Resolved]
  - On and off phenomenon [Unknown]

NARRATIVE: CASE EVENT DATE: 20210822
